FAERS Safety Report 15367374 (Version 1)
Quarter: 2018Q3

REPORT INFORMATION
  Report Type: Spontaneous
  Country: US (occurrence: US)
  Receive Date: 20180910
  Receipt Date: 20180910
  Transmission Date: 20181010
  Serious: No
  Sender: FDA-Public Use
  Company Number: US-LUNDBECK-DKLU2053806

PATIENT
  Age: 79 Year
  Sex: Male

DRUGS (3)
  1. NORTHERA [Suspect]
     Active Substance: DROXIDOPA
     Dosage: DAY 3 AND 4
     Route: 048
  2. NORTHERA [Suspect]
     Active Substance: DROXIDOPA
     Indication: PARKINSON^S DISEASE
     Dosage: DAY 1 AND 2
     Route: 048
     Dates: start: 20180524
  3. NORTHERA [Suspect]
     Active Substance: DROXIDOPA
     Dosage: DAY 5 AND 6
     Route: 048

REACTIONS (1)
  - Influenza like illness [Unknown]

NARRATIVE: CASE EVENT DATE: 20180531
